FAERS Safety Report 7210556-1 (Version None)
Quarter: 2011Q1

REPORT INFORMATION
  Report Type: 
  Country: None (occurrence: None)
  Receive Date: 20110105
  Receipt Date: 20101223
  Transmission Date: 20110831
  Serious: Yes (Hospitalization)
  Sender: FDA-Public Use
  Company Number: GB-AMGEN-US245544

PATIENT
  Sex: Female
  Weight: 59 kg

DRUGS (8)
  1. METHOTREXATE [Concomitant]
     Dosage: UNK UNK, UNK
  2. ETANERCEPT [Suspect]
     Dosage: 25 MG, 2X/DAY
     Route: 058
     Dates: start: 20040415
  3. ARTHROTEC [Concomitant]
     Route: 065
  4. DICLOFENAC SODIUM/MISOPROSTOL [Concomitant]
     Dosage: UNK UNK, UNK
  5. BENDROFLUAZIDE [Concomitant]
     Route: 065
  6. BENDROFLUMETHIAZIDE [Concomitant]
     Dosage: UNK UNK, UNK
  7. METHOTREXATE [Concomitant]
     Route: 065
  8. ETANERCEPT [Suspect]
     Indication: RHEUMATOID ARTHRITIS
     Dosage: 25 MG, BID
     Route: 058
     Dates: start: 20040415

REACTIONS (1)
  - NEURITIS [None]
